FAERS Safety Report 19399980 (Version 4)
Quarter: 2022Q1

REPORT INFORMATION
  Report Type: Report from Study
  Country: DE (occurrence: DE)
  Receive Date: 20210610
  Receipt Date: 20220214
  Transmission Date: 20220423
  Serious: Yes (Other)
  Sender: FDA-Public Use
  Company Number: DE-TAKEDA-2021TUS034724

PATIENT
  Age: 48 Year
  Sex: Male

DRUGS (33)
  1. TEDUGLUTIDE [Suspect]
     Active Substance: TEDUGLUTIDE
     Indication: Short-bowel syndrome
     Dosage: 3.7 MILLIGRAM, QD
     Route: 065
     Dates: start: 20150903, end: 20170316
  2. TEDUGLUTIDE [Suspect]
     Active Substance: TEDUGLUTIDE
     Indication: Short-bowel syndrome
     Dosage: 3.7 MILLIGRAM, QD
     Route: 065
     Dates: start: 20150903, end: 20170316
  3. TEDUGLUTIDE [Suspect]
     Active Substance: TEDUGLUTIDE
     Indication: Short-bowel syndrome
     Dosage: 3.7 MILLIGRAM, QD
     Route: 065
     Dates: start: 20150903, end: 20170316
  4. TEDUGLUTIDE [Suspect]
     Active Substance: TEDUGLUTIDE
     Indication: Short-bowel syndrome
     Dosage: 3.7 MILLIGRAM, QD
     Route: 065
     Dates: start: 20150903, end: 20170316
  5. TEDUGLUTIDE [Suspect]
     Active Substance: TEDUGLUTIDE
     Dosage: 0.5 MILLIGRAM, QD
     Route: 058
     Dates: start: 20150903, end: 20171016
  6. TEDUGLUTIDE [Suspect]
     Active Substance: TEDUGLUTIDE
     Dosage: 0.5 MILLIGRAM, QD
     Route: 058
     Dates: start: 20150903, end: 20171016
  7. TEDUGLUTIDE [Suspect]
     Active Substance: TEDUGLUTIDE
     Dosage: 0.5 MILLIGRAM, QD
     Route: 058
     Dates: start: 20150903, end: 20171016
  8. TEDUGLUTIDE [Suspect]
     Active Substance: TEDUGLUTIDE
     Dosage: 0.5 MILLIGRAM, QD
     Route: 058
     Dates: start: 20150903, end: 20171016
  9. TEDUGLUTIDE [Suspect]
     Active Substance: TEDUGLUTIDE
     Dosage: 5 MILLIGRAM, QD
     Route: 058
     Dates: start: 20150905, end: 20171016
  10. TEDUGLUTIDE [Suspect]
     Active Substance: TEDUGLUTIDE
     Dosage: 5 MILLIGRAM, QD
     Route: 058
     Dates: start: 20150905, end: 20171016
  11. TEDUGLUTIDE [Suspect]
     Active Substance: TEDUGLUTIDE
     Dosage: 5 MILLIGRAM, QD
     Route: 058
     Dates: start: 20150905, end: 20171016
  12. TEDUGLUTIDE [Suspect]
     Active Substance: TEDUGLUTIDE
     Dosage: 5 MILLIGRAM, QD
     Route: 058
     Dates: start: 20150905, end: 20171016
  13. TEDUGLUTIDE [Suspect]
     Active Substance: TEDUGLUTIDE
     Dosage: 5 MILLIGRAM, QD
     Route: 058
     Dates: start: 20170505
  14. TEDUGLUTIDE [Suspect]
     Active Substance: TEDUGLUTIDE
     Dosage: 5 MILLIGRAM, QD
     Route: 058
     Dates: start: 20170505
  15. TEDUGLUTIDE [Suspect]
     Active Substance: TEDUGLUTIDE
     Dosage: 5 MILLIGRAM, QD
     Route: 058
     Dates: start: 20170505
  16. TEDUGLUTIDE [Suspect]
     Active Substance: TEDUGLUTIDE
     Dosage: 5 MILLIGRAM, QD
     Route: 058
     Dates: start: 20170505
  17. TEDUGLUTIDE [Suspect]
     Active Substance: TEDUGLUTIDE
     Dosage: 3.7 MILLIGRAM, QD
     Route: 065
     Dates: start: 20170505
  18. TEDUGLUTIDE [Suspect]
     Active Substance: TEDUGLUTIDE
     Dosage: 3.7 MILLIGRAM, QD
     Route: 065
     Dates: start: 20170505
  19. TEDUGLUTIDE [Suspect]
     Active Substance: TEDUGLUTIDE
     Dosage: 3.7 MILLIGRAM, QD
     Route: 065
     Dates: start: 20170505
  20. TEDUGLUTIDE [Suspect]
     Active Substance: TEDUGLUTIDE
     Dosage: 3.7 MILLIGRAM, QD
     Route: 065
     Dates: start: 20170505
  21. GLUTAMINE [Concomitant]
     Active Substance: GLUTAMINE
     Indication: Vitamin B complex deficiency
     Dosage: 999 MILLIGRAM, QD
     Route: 048
     Dates: start: 20190618
  22. DEXFOSFOSERINE [Concomitant]
     Active Substance: DEXFOSFOSERINE
     Indication: Vitamin B complex deficiency
     Dosage: 999 MILLIGRAM, QD
     Route: 048
     Dates: start: 20190618
  23. VITAMIN K [Concomitant]
     Active Substance: PHYTONADIONE
     Indication: Vitamin K deficiency
     Dosage: 5 GTT DROPS, QD
     Route: 048
     Dates: start: 20210913
  24. VITAMIN B12 [Concomitant]
     Active Substance: CYANOCOBALAMIN
     Indication: Vitamin B12 deficiency
     Dosage: UNK, MONTHLY
     Route: 058
     Dates: start: 20210302
  25. ZINC OROTATE [Concomitant]
     Active Substance: ZINC OROTATE
     Indication: Zinc deficiency
     Dosage: UNK, QD
     Route: 048
     Dates: start: 20210913
  26. D3 VICOTRAT [Concomitant]
  27. PANCRELIPASE [Concomitant]
     Active Substance: PANCRELIPASE
     Dosage: UNK, BID
  28. COLESEVELAM HYDROCHLORIDE [Concomitant]
     Active Substance: COLESEVELAM HYDROCHLORIDE
     Dosage: UNK, BID
  29. MAGNESIUM [Concomitant]
     Active Substance: MAGNESIUM
     Dosage: UNK, QD
  30. ALLE [Concomitant]
  31. IODINE [Concomitant]
     Active Substance: IODINE
     Dosage: 100 MICROGRAM, QD
     Route: 065
  32. CALCIUM CARBONATE\CHOLECALCIFEROL [Concomitant]
     Active Substance: CALCIUM CARBONATE\CHOLECALCIFEROL
     Dosage: UNK MILLIGRAM
  33. PROLIA [Concomitant]
     Active Substance: DENOSUMAB
     Dosage: 60 MILLIGRAM
     Route: 065

REACTIONS (3)
  - Hydronephrosis [Recovered/Resolved]
  - Benign prostatic hyperplasia [Unknown]
  - Cholelithiasis [Not Recovered/Not Resolved]

NARRATIVE: CASE EVENT DATE: 20210101
